FAERS Safety Report 15535527 (Version 1)
Quarter: 2018Q4

REPORT INFORMATION
  Report Type: Spontaneous
  Country: US (occurrence: US)
  Receive Date: 20181022
  Receipt Date: 20181022
  Transmission Date: 20190205
  Serious: No
  Sender: FDA-Public Use
  Company Number: US-BAYER-2018-195815

PATIENT
  Age: 65 Year
  Sex: Female
  Weight: 47.98 kg

DRUGS (2)
  1. CLARITIN [Suspect]
     Active Substance: LORATADINE
     Indication: NASOPHARYNGITIS
  2. CLARITIN [Suspect]
     Active Substance: LORATADINE
     Indication: HYPERSENSITIVITY
     Dosage: 1 DF, PRN 1 TABLET A DAY AS NEEDED
     Route: 048
     Dates: start: 20181019

REACTIONS (3)
  - Off label use [Unknown]
  - Product administration error [None]
  - Product use in unapproved indication [Unknown]

NARRATIVE: CASE EVENT DATE: 20181019
